FAERS Safety Report 19895421 (Version 1)
Quarter: 2021Q3

REPORT INFORMATION
  Report Type: Spontaneous
  Country: DE (occurrence: CH)
  Receive Date: 20210929
  Receipt Date: 20210929
  Transmission Date: 20211014
  Serious: Yes (Hospitalization)
  Sender: FDA-Public Use
  Company Number: CH-ELI_LILLY_AND_COMPANY-CH202109010905

PATIENT
  Age: 63 Year
  Sex: Male

DRUGS (5)
  1. ERBITUX [Suspect]
     Active Substance: CETUXIMAB
     Dosage: 250 MG/M2, UNKNOWN
     Route: 065
     Dates: start: 2021
  2. FOLINIC ACID [Concomitant]
     Active Substance: LEUCOVORIN
     Indication: COLON CANCER METASTATIC
     Dosage: CYCLICAL
     Dates: start: 20210720, end: 202108
  3. 5?FU [FLUOROURACIL] [Suspect]
     Active Substance: FLUOROURACIL
     Indication: COLON CANCER METASTATIC
     Dosage: 2000 MG/M2, UNKNOWN
     Route: 065
     Dates: start: 20210720
  4. IRINOTECAN [Suspect]
     Active Substance: IRINOTECAN
     Indication: COLON CANCER METASTATIC
     Dosage: 80 MG/M2, UNKNOWN
     Route: 065
     Dates: start: 20210720
  5. ERBITUX [Suspect]
     Active Substance: CETUXIMAB
     Indication: COLON CANCER METASTATIC
     Dosage: 400 MG/M2, UNKNOWN
     Route: 065
     Dates: start: 20210720

REACTIONS (3)
  - Hyponatraemia [Recovering/Resolving]
  - Gastrointestinal disorder [Recovering/Resolving]
  - Renal failure [Recovering/Resolving]

NARRATIVE: CASE EVENT DATE: 20210806
